FAERS Safety Report 9681744 (Version 5)
Quarter: 2015Q2

REPORT INFORMATION
  Report Type: Spontaneous
  Country: US (occurrence: US)
  Receive Date: 20131111
  Receipt Date: 20150421
  Transmission Date: 20150821
  Serious: Yes (Hospitalization, Disabling, Other)
  Sender: FDA-Public Use
  Company Number: US-009507513-1311USA001669

PATIENT
  Sex: Female

DRUGS (5)
  1. CALCIUM (UNSPECIFIED) [Concomitant]
     Active Substance: CALCIUM
     Indication: OSTEOPOROSIS
     Dosage: 600 MG, UNK
     Dates: start: 2001
  2. CHOLECALCIFEROL [Concomitant]
     Active Substance: CHOLECALCIFEROL
     Dosage: 2000 MG, UNK
     Dates: start: 2001
  3. ALENDRONATE SODIUM. [Suspect]
     Active Substance: ALENDRONATE SODIUM
     Dosage: UNK
     Dates: start: 20100827, end: 20101007
  4. PREDNISONE. [Concomitant]
     Active Substance: PREDNISONE
     Indication: RHINITIS ALLERGIC
     Dosage: UNK
     Dates: start: 1960
  5. FOSAMAX [Suspect]
     Active Substance: ALENDRONATE SODIUM
     Indication: OSTEOPOROSIS
     Dosage: 70 MG, QW
     Route: 048
     Dates: start: 2001, end: 2010

REACTIONS (33)
  - Depression [Not Recovered/Not Resolved]
  - Anaemia [Unknown]
  - Foot operation [Unknown]
  - Hypertension [Not Recovered/Not Resolved]
  - Musculoskeletal disorder [Not Recovered/Not Resolved]
  - Upper limb fracture [Unknown]
  - Hypokalaemia [Unknown]
  - Tenosynovitis [Unknown]
  - Anaemia [Unknown]
  - Foot fracture [Unknown]
  - Panic attack [Unknown]
  - Rotator cuff syndrome [Unknown]
  - Lower extremity mass [Unknown]
  - Fall [Unknown]
  - Back pain [Not Recovered/Not Resolved]
  - Arthrodesis [Unknown]
  - Skin cosmetic procedure [Unknown]
  - Arthritis [Unknown]
  - Melaena [Unknown]
  - Femur fracture [Recovered/Resolved with Sequelae]
  - Joint arthroplasty [Unknown]
  - Asthma [Not Recovered/Not Resolved]
  - Joint injection [Unknown]
  - Open reduction of fracture [Unknown]
  - Back disorder [Not Recovered/Not Resolved]
  - Adverse event [Not Recovered/Not Resolved]
  - Anxiety [Unknown]
  - Rib fracture [Unknown]
  - Ankle fracture [Unknown]
  - Liver disorder [Unknown]
  - Dental implantation [Unknown]
  - Joint arthroplasty [Unknown]
  - Osteotomy [Unknown]

NARRATIVE: CASE EVENT DATE: 2002
